FAERS Safety Report 18940628 (Version 1)
Quarter: 2021Q1

REPORT INFORMATION
  Report Type: Spontaneous
  Country: CA (occurrence: CA)
  Receive Date: 20210225
  Receipt Date: 20210225
  Transmission Date: 20210420
  Serious: Yes (Hospitalization)
  Sender: FDA-Public Use
  Company Number: CA-ROCHE-2772366

PATIENT
  Age: 52 Year
  Sex: Female

DRUGS (24)
  1. ACETAMINOPHEN. [Concomitant]
     Active Substance: ACETAMINOPHEN
     Indication: PAIN IN EXTREMITY
     Route: 048
  2. IMODIUM [Concomitant]
     Active Substance: LOPERAMIDE HYDROCHLORIDE
  3. LITHIUM. [Concomitant]
     Active Substance: LITHIUM
  4. NYSTATIN. [Concomitant]
     Active Substance: NYSTATIN
  5. RISPERIDONE. [Suspect]
     Active Substance: RISPERIDONE
     Indication: PSYCHOTIC DISORDER
     Route: 048
  6. ABACAVIR. [Concomitant]
     Active Substance: ABACAVIR
  7. DIAZEPAM. [Suspect]
     Active Substance: DIAZEPAM
     Indication: DEPRESSION
     Route: 048
  8. CALCIUM CARBONATE. [Concomitant]
     Active Substance: CALCIUM CARBONATE
  9. ATOVAQUONE;PROGUANIL [Concomitant]
  10. DIAZEPAM. [Suspect]
     Active Substance: DIAZEPAM
     Route: 048
  11. OLANZAPINE. [Suspect]
     Active Substance: OLANZAPINE
     Indication: PSYCHOTIC DISORDER
     Route: 048
  12. TRAZODONE [Suspect]
     Active Substance: TRAZODONE HYDROCHLORIDE
     Indication: DEPRESSION
     Route: 048
  13. T?20 [Concomitant]
     Active Substance: ENFUVIRTIDE
  14. CLONAZEPAM. [Suspect]
     Active Substance: CLONAZEPAM
     Indication: HYPOMANIA
     Route: 048
  15. TEGRETOL [Suspect]
     Active Substance: CARBAMAZEPINE
     Indication: HYPOMANIA
     Route: 065
  16. KALETRA [Concomitant]
     Active Substance: LOPINAVIR\RITONAVIR
  17. DIAZEPAM. [Suspect]
     Active Substance: DIAZEPAM
     Route: 048
  18. PROCYCLIDINE [Suspect]
     Active Substance: PROCYCLIDINE
     Indication: PROPHYLAXIS
     Route: 048
  19. QUETIAPINE. [Suspect]
     Active Substance: QUETIAPINE
     Indication: PSYCHOTIC DISORDER
     Route: 048
  20. LACTULOSE. [Concomitant]
     Active Substance: LACTULOSE
  21. OLANZAPINE. [Suspect]
     Active Substance: OLANZAPINE
     Route: 048
  22. 3TC [Concomitant]
     Active Substance: LAMIVUDINE
  23. BISACODYL. [Concomitant]
     Active Substance: BISACODYL
  24. CHLORAL HYDRATE [Concomitant]
     Active Substance: CHLORAL HYDRATE

REACTIONS (11)
  - Blood bilirubin increased [Unknown]
  - Hepatotoxicity [Unknown]
  - Cholelithiasis [Unknown]
  - Hypomania [Unknown]
  - Nausea [Unknown]
  - Vomiting [Unknown]
  - Schizophrenia [Unknown]
  - Condition aggravated [Unknown]
  - Jaundice cholestatic [Unknown]
  - Hepatic enzyme increased [Unknown]
  - Pneumonia [Unknown]
